FAERS Safety Report 24912423 (Version 2)
Quarter: 2025Q1

REPORT INFORMATION
  Report Type: Spontaneous
  Country: CN (occurrence: CN)
  Receive Date: 20250131
  Receipt Date: 20250205
  Transmission Date: 20250408
  Serious: Yes (Hospitalization)
  Sender: BEIGENE
  Company Number: CN-BEIGENE-BGN-2025-001120

PATIENT
  Age: 74 Year

DRUGS (7)
  1. TISLELIZUMAB [Suspect]
     Active Substance: TISLELIZUMAB
     Indication: Lung neoplasm malignant
     Dosage: 200 MILLIGRAM, QMO
  2. PACLITAXEL [Concomitant]
     Active Substance: PACLITAXEL
     Indication: Lung neoplasm malignant
     Dosage: 0.2 GRAM, QMO
  3. PACLITAXEL [Concomitant]
     Active Substance: PACLITAXEL
     Dosage: 0.3 GRAM, QMO
  4. NEDAPLATIN [Concomitant]
     Active Substance: NEDAPLATIN
     Indication: Lung neoplasm malignant
     Dosage: 100 MILLIGRAM, QMO
  5. Shen song yang xin [Concomitant]
     Indication: Coronary artery disease
  6. Shen song yang xin [Concomitant]
     Indication: Myocardial ischaemia
     Dosage: 1.2 GRAM, TID
  7. Shen song yang xin [Concomitant]
     Indication: Heart rate abnormal
     Dosage: 1.2 GRAM, TID

REACTIONS (1)
  - Secondary adrenocortical insufficiency [Recovering/Resolving]
